FAERS Safety Report 5153757-9 (Version None)
Quarter: 2006Q4

REPORT INFORMATION
  Report Type: 
  Country: None (occurrence: None)
  Receive Date: 20061120
  Receipt Date: 20060509
  Transmission Date: 20070319
  Serious: Yes (Hospitalization)
  Sender: FDA-Public Use
  Company Number: US-ELI_LILLY_AND_COMPANY-US200609002822

PATIENT
  Age: 44 Year
  Sex: Female
  Weight: 89.795 kg

DRUGS (7)
  1. ZIPRASIDONE [Concomitant]
     Dates: start: 20020101
  2. BUPROPION HCL [Concomitant]
     Dates: start: 19980101, end: 20020101
  3. FLUOXETINE                              /N/A/ [Concomitant]
     Dates: start: 19980101, end: 20020101
  4. MIRTAZAPINE [Concomitant]
     Dates: start: 19980101, end: 20020101
  5. NEFAZODONE HCL [Concomitant]
     Dates: start: 19980101, end: 20020101
  6. PAROXETINE HCL [Concomitant]
     Dates: start: 19980101, end: 20020101
  7. ZYPREXA [Suspect]
     Dosage: 10 MG, UNK
     Dates: end: 20040101

REACTIONS (6)
  - BILIARY TRACT DISORDER [None]
  - BLOOD CHOLESTEROL INCREASED [None]
  - BLOOD TRIGLYCERIDES INCREASED [None]
  - HYPERTENSION [None]
  - KETONURIA [None]
  - PANCREATITIS [None]
